FAERS Safety Report 17915764 (Version 1)
Quarter: 2020Q2

REPORT INFORMATION
  Report Type: Spontaneous
  Country: US (occurrence: US)
  Receive Date: 20200619
  Receipt Date: 20200619
  Transmission Date: 20200714
  Serious: No
  Sender: FDA-Public Use
  Company Number: US-GLENMARK PHARMACEUTICALS-2020GMK047547

PATIENT

DRUGS (1)
  1. RANITIDINE TABLETS USP, 300 MG [Suspect]
     Active Substance: RANITIDINE HYDROCHLORIDE
     Indication: GASTROOESOPHAGEAL REFLUX DISEASE
     Dosage: ? TABLET OF THE 300 MG OR MORE
     Route: 048
     Dates: end: 202004

REACTIONS (4)
  - Drug ineffective [Unknown]
  - Recalled product administered [Unknown]
  - Wrong technique in product usage process [Unknown]
  - Drug screen positive [Unknown]
